FAERS Safety Report 12425592 (Version 4)
Quarter: 2017Q1

REPORT INFORMATION
  Report Type: Spontaneous
  Country: US (occurrence: US)
  Receive Date: 20160601
  Receipt Date: 20170308
  Transmission Date: 20170428
  Serious: Yes (Hospitalization, Disabling, Other)
  Sender: FDA-Public Use
  Company Number: US-009507513-1605USA013409

PATIENT
  Sex: Female
  Weight: 95 kg

DRUGS (2)
  1. NUVARING [Suspect]
     Active Substance: ETHINYL ESTRADIOL\ETONOGESTREL
     Indication: CONTRACEPTION
     Dosage: 1 DF, UNKNOWN
     Route: 067
     Dates: start: 201304, end: 20130716
  2. ACCUTANE [Concomitant]
     Active Substance: ISOTRETINOIN
     Indication: PRODUCT USED FOR UNKNOWN INDICATION
     Dosage: UNK
     Route: 065

REACTIONS (11)
  - Uterine dilation and curettage [Unknown]
  - Vaginal cyst [Unknown]
  - Pulmonary embolism [Recovering/Resolving]
  - Fatigue [Unknown]
  - Gastritis [Unknown]
  - Diverticulitis [Unknown]
  - Cyst [Unknown]
  - Dysmenorrhoea [Unknown]
  - Depression [Unknown]
  - Uterine leiomyoma [Unknown]
  - Contusion [Unknown]

NARRATIVE: CASE EVENT DATE: 201307
